FAERS Safety Report 9442048 (Version 1)
Quarter: 2013Q3

REPORT INFORMATION
  Report Type: Spontaneous
  Country: JP (occurrence: JP)
  Receive Date: 20130806
  Receipt Date: 20130806
  Transmission Date: 20140515
  Serious: Yes (Hospitalization)
  Sender: FDA-Public Use
  Company Number: JP-NOVOPROD-384086

PATIENT
  Sex: Male

DRUGS (2)
  1. NOVORAPID CHU [Suspect]
     Indication: TYPE 2 DIABETES MELLITUS
     Dosage: 10 IU, TID
     Route: 058
  2. LEVEMIR CHU FLEXPEN [Suspect]
     Indication: TYPE 2 DIABETES MELLITUS
     Dosage: 10 IU, QD
     Route: 058

REACTIONS (4)
  - Heat illness [Recovered/Resolved]
  - Diabetic hyperglycaemic coma [Unknown]
  - Injection site infection [Unknown]
  - Diabetes mellitus inadequate control [Unknown]
